FAERS Safety Report 9438902 (Version 1)
Quarter: 2013Q3

REPORT INFORMATION
  Report Type: Report from Study
  Country: US (occurrence: US)
  Receive Date: 20130802
  Receipt Date: 20130802
  Transmission Date: 20140515
  Serious: Yes (Death, Hospitalization)
  Sender: FDA-Public Use
  Company Number: US-ABBOTT-13P-163-1127331-00

PATIENT
  Age: 64 Year
  Sex: Male

DRUGS (9)
  1. HUMIRA [Suspect]
     Indication: PSORIASIS
     Dosage: UNKNOWN
     Dates: start: 201303, end: 201307
  2. METFORMIN [Concomitant]
     Indication: DIABETES MELLITUS
  3. NOVOLOG INSULIN [Concomitant]
     Indication: DIABETES MELLITUS
  4. LIPITOR [Concomitant]
     Indication: HYPERCHOLESTEROLAEMIA
  5. LOSARTAN [Concomitant]
     Indication: PRODUCT USED FOR UNKNOWN INDICATION
  6. ZOLOFT [Concomitant]
     Indication: PRODUCT USED FOR UNKNOWN INDICATION
  7. METHOTREXATE [Concomitant]
     Indication: PRODUCT USED FOR UNKNOWN INDICATION
  8. FOLIC ACID [Concomitant]
     Indication: PRODUCT USED FOR UNKNOWN INDICATION
  9. CYCLOSPORIN [Concomitant]
     Indication: PRODUCT USED FOR UNKNOWN INDICATION

REACTIONS (8)
  - Death [Fatal]
  - Off label use [Unknown]
  - Dysphonia [Unknown]
  - Laryngitis [Unknown]
  - Neuropathic ulcer [Unknown]
  - Sepsis [Unknown]
  - Pneumonia [Unknown]
  - Immunosuppression [Unknown]
